FAERS Safety Report 9528987 (Version 2)
Quarter: 2013Q4

REPORT INFORMATION
  Report Type: Spontaneous
  Country: US (occurrence: US)
  Receive Date: 20130917
  Receipt Date: 20131016
  Transmission Date: 20140711
  Serious: No
  Sender: FDA-Public Use
  Company Number: US-PFIZER INC-2013263481

PATIENT
  Age: 88 Year
  Sex: Female
  Weight: 68.03 kg

DRUGS (1)
  1. ADVIL [Suspect]
     Indication: NEURALGIA
     Dosage: 400 MG (BY TAKING TWO FILM COATED TABLETS OF 200MG), THREE TIMES A DAY
     Route: 048
     Dates: start: 20130909, end: 20130911

REACTIONS (5)
  - Feeling hot [Unknown]
  - Pyrexia [Unknown]
  - Nervousness [Unknown]
  - Nasopharyngitis [Unknown]
  - Dizziness [Unknown]
